FAERS Safety Report 16648633 (Version 3)
Quarter: 2019Q4

REPORT INFORMATION
  Report Type: Report from Study
  Country: US (occurrence: US)
  Receive Date: 20190730
  Receipt Date: 20191008
  Transmission Date: 20200122
  Serious: Yes (Hospitalization)
  Sender: FDA-Public Use
  Company Number: US-ADAMAS PHARMA, LLC-2019ADA01617

PATIENT
  Age: 83 Year
  Sex: Male

DRUGS (11)
  1. SINEMET CR [Concomitant]
     Active Substance: CARBIDOPA\LEVODOPA
     Dosage: 1 DOSAGE UNITS, 1X/DAY
  2. EXELON [Concomitant]
     Active Substance: RIVASTIGMINE TARTRATE
     Dosage: 4.6 MG, 1X/DAY AT BEDTIME
  3. FUROSEMIDE. [Concomitant]
     Active Substance: FUROSEMIDE
     Dosage: 15 MG, 2X/DAY AT 9AM AND 5PM
     Route: 048
  4. GOCOVRI [Suspect]
     Active Substance: AMANTADINE
     Indication: DYSKINESIA
     Dosage: 68.5 MG, 1X/DAY AT BEDTIME
     Route: 048
     Dates: start: 20190530, end: 20190605
  5. CARBIDOPA/LEVODOPA [Concomitant]
     Active Substance: CARBIDOPA\LEVODOPA
     Dosage: 1 TABLETS, 4X/DAY
     Route: 048
  6. FINASTERIDE. [Concomitant]
     Active Substance: FINASTERIDE
     Dosage: 5 MG, 1X/DAY
  7. NUPLAZID [Concomitant]
     Active Substance: PIMAVANSERIN TARTRATE
     Dosage: 34 MG, 1X/DAY
  8. AZILECT [Concomitant]
     Active Substance: RASAGILINE MESYLATE
     Dosage: 1 MG, 1X/DAY
  9. SIMVASTATIN. [Concomitant]
     Active Substance: SIMVASTATIN
     Dosage: 40 MG, 1X/DAY
     Route: 048
  10. GOCOVRI [Suspect]
     Active Substance: AMANTADINE
     Indication: DYSKINESIA
     Dosage: 137 MG, 1X/DAY AT BEDTIME
     Route: 048
     Dates: start: 20190606, end: 2019
  11. MIDODRINE [Concomitant]
     Active Substance: MIDODRINE
     Dosage: 2.5 MG, 3X/DAY

REACTIONS (12)
  - Oesophageal obstruction [Recovered/Resolved]
  - Oesophagitis [Unknown]
  - Oesophageal stenosis [Unknown]
  - Respiratory failure [Recovered/Resolved]
  - Intensive care unit acquired weakness [Unknown]
  - Gastrointestinal endoscopic therapy [Recovered/Resolved]
  - Bacterial disease carrier [Unknown]
  - Urinary tract infection [Unknown]
  - Constipation [Unknown]
  - Dysphagia [Recovered/Resolved]
  - Hyperlipidaemia [Unknown]
  - Hypertension [Unknown]

NARRATIVE: CASE EVENT DATE: 201906
